FAERS Safety Report 8839877 (Version 1)
Quarter: 2012Q4

REPORT INFORMATION
  Report Type: 
  Country: ES (occurrence: ES)
  Receive Date: 20121015
  Receipt Date: 20121015
  Transmission Date: 20130627
  Serious: Yes (Hospitalization)
  Sender: FDA-Public Use
  Company Number: ES-RANBAXY-2012RR-61000

PATIENT
  Age: 55 Year
  Sex: Male

DRUGS (5)
  1. ROSUVASTATIN [Suspect]
     Indication: DYSLIPIDAEMIA
     Dosage: 10 mg/day
     Route: 065
  2. OLMESARTAN [Suspect]
     Indication: HYPERTENSION
     Dosage: UNK
     Route: 065
  3. IBUPROFEN [Suspect]
     Indication: MYALGIA
     Dosage: 2 DF, (2 tablets of 600 mg each)
     Route: 048
  4. TORASEMIDE [Suspect]
     Indication: HYPERTENSION
     Dosage: UNK
     Route: 065
  5. ATORVASTATIN [Concomitant]
     Indication: DYSLIPIDAEMIA
     Dosage: 20 mg, qod
     Route: 065

REACTIONS (2)
  - Rhabdomyolysis [Recovered/Resolved]
  - Renal failure acute [Recovering/Resolving]
